FAERS Safety Report 6548462-8 (Version None)
Quarter: 2010Q1

REPORT INFORMATION
  Report Type: 
  Country: None (occurrence: None)
  Receive Date: 20100124
  Receipt Date: 20090707
  Transmission Date: 20100710
  Serious: No
  Sender: FDA-Public Use
  Company Number: US-ALLERGAN-0909563US

PATIENT
  Age: 49 Year
  Sex: Female

DRUGS (2)
  1. RESTASIS [Suspect]
     Indication: DRY EYE
     Route: 047
     Dates: start: 20090706, end: 20090707
  2. LOTEMAX [Concomitant]

REACTIONS (8)
  - EYE IRRITATION [None]
  - EYE PRURITUS [None]
  - EYE SWELLING [None]
  - EYELID OEDEMA [None]
  - NASAL CONGESTION [None]
  - NASAL DISCOMFORT [None]
  - OCULAR HYPERAEMIA [None]
  - THROAT IRRITATION [None]
